FAERS Safety Report 4752391-X (Version None)
Quarter: 2005Q3

REPORT INFORMATION
  Report Type: 
  Country: None (occurrence: None)
  Receive Date: 20050823
  Receipt Date: 20050810
  Transmission Date: 20060218
  Serious: Yes (Hospitalization)
  Sender: FDA-Public Use
  Company Number: ZONI002198

PATIENT
  Age: 45 Year
  Sex: Female

DRUGS (7)
  1. ZONISAMIDE [Suspect]
     Indication: LOSS OF CONSCIOUSNESS
     Dosage: 400 MG, 2 IN 1 D, ORAL
     Route: 048
     Dates: start: 20050513, end: 20050530
  2. ARTANE [Concomitant]
  3. ATARAX [Concomitant]
  4. ZOLPIDEM TARTRATE [Concomitant]
  5. ESTAZOLAM [Concomitant]
  6. VEGETAMIN-A (VEGETAMIN A) [Concomitant]
  7. DIAZEPAM [Concomitant]

REACTIONS (13)
  - ANOREXIA [None]
  - ASTHENIA [None]
  - BRONCHITIS [None]
  - DRUG ERUPTION [None]
  - ECZEMA [None]
  - GAIT DISTURBANCE [None]
  - GENERALISED OEDEMA [None]
  - INSOMNIA [None]
  - OEDEMA [None]
  - ORAL INTAKE REDUCED [None]
  - PAIN [None]
  - PIGMENTATION DISORDER [None]
  - SKIN EXFOLIATION [None]
